FAERS Safety Report 11847677 (Version 1)
Quarter: 2015Q4

REPORT INFORMATION
  Report Type: Spontaneous
  Country: RU (occurrence: RU)
  Receive Date: 20151217
  Receipt Date: 20151217
  Transmission Date: 20160305
  Serious: Yes (Hospitalization)
  Sender: FDA-Public Use
  Company Number: RU-ASTRAZENECA-2015SF19454

PATIENT
  Age: 18584 Day
  Sex: Female

DRUGS (5)
  1. DOXYCYCLINE. [Concomitant]
     Active Substance: DOXYCYCLINE
     Indication: ENDOMETRIAL HYPERPLASIA
     Route: 048
     Dates: start: 20150820, end: 20150824
  2. FLUCONAZOLE. [Concomitant]
     Active Substance: FLUCONAZOLE
     Indication: ENDOMETRIAL HYPERPLASIA
     Route: 048
     Dates: start: 20150820, end: 20150820
  3. OMEPRAZOLE. [Suspect]
     Active Substance: OMEPRAZOLE
     Route: 048
  4. OXYTOCIN. [Concomitant]
     Active Substance: OXYTOCIN
     Indication: ENDOMETRIAL HYPERPLASIA
     Route: 030
     Dates: start: 20150820, end: 20150824
  5. METRONIDAZOLE. [Concomitant]
     Active Substance: METRONIDAZOLE
     Indication: ENDOMETRIAL HYPERPLASIA
     Route: 048
     Dates: start: 20150820, end: 20150824

REACTIONS (2)
  - Chronic gastritis [Recovered/Resolved]
  - Pancreatitis chronic [Recovered/Resolved]

NARRATIVE: CASE EVENT DATE: 20150826
